FAERS Safety Report 9037045 (Version 3)
Quarter: 2013Q3

REPORT INFORMATION
  Report Type: Spontaneous
  Country: CA (occurrence: None)
  Receive Date: 20121207
  Receipt Date: 20130708
  Transmission Date: 20140515
  Serious: Yes (Other)
  Sender: FDA-Public Use
  Company Number: 2012034121

PATIENT
  Age: 47 Year
  Sex: Female

DRUGS (1)
  1. VIVAGLOBIN [Suspect]
     Route: 058

REACTIONS (9)
  - Coeliac disease [None]
  - Gastrooesophageal reflux disease [None]
  - Abdominal pain upper [None]
  - Fatigue [None]
  - Diarrhoea [None]
  - Reaction to drug excipients [None]
  - Asthenia [None]
  - Blood immunoglobulin G increased [None]
  - Product substitution issue [None]
